FAERS Safety Report 5235491-X (Version None)
Quarter: 2007Q1

REPORT INFORMATION
  Report Type: 
  Country: None (occurrence: None)
  Receive Date: 20070212
  Receipt Date: 20070130
  Transmission Date: 20070707
  Serious: Yes (Hospitalization, Other)
  Sender: FDA-Public Use
  Company Number: DEWYE430106NOV06

PATIENT
  Sex: Female

DRUGS (5)
  1. ENBREL [Suspect]
     Indication: RHEUMATOID ARTHRITIS
     Dosage: 50 MG WEEKLY
     Route: 058
  2. CORTISONE ACETATE [Suspect]
     Indication: RHEUMATOID ARTHRITIS
     Dosage: 5 MG FREQUENCY UNKNOWN
  3. METHOTREXATE [Suspect]
     Indication: RHEUMATOID ARTHRITIS
     Route: 065
     Dates: start: 20030101
  4. ARAVA [Suspect]
     Indication: RHEUMATOID ARTHRITIS
     Route: 048
  5. METFORMIN [Concomitant]
     Dosage: UNKNOWN
     Dates: start: 20060901

REACTIONS (10)
  - ALOPECIA [None]
  - CARPAL TUNNEL SYNDROME [None]
  - DIABETES MELLITUS [None]
  - DIZZINESS [None]
  - DYSAESTHESIA [None]
  - FATIGUE [None]
  - HAEMORRHAGE [None]
  - MALAISE [None]
  - PAIN [None]
  - TRIGEMINAL NEURALGIA [None]
